FAERS Safety Report 9489939 (Version 2)
Quarter: 2013Q4

REPORT INFORMATION
  Report Type: Spontaneous
  Country: US (occurrence: US)
  Receive Date: 20130829
  Receipt Date: 20131011
  Transmission Date: 20140711
  Serious: Yes (Other)
  Sender: FDA-Public Use
  Company Number: US-PFIZER INC-2013246626

PATIENT
  Age: 58 Year
  Sex: Female

DRUGS (8)
  1. XELJANZ [Suspect]
     Indication: RHEUMATOID ARTHRITIS
     Dosage: 5 MG, 2X/DAY
     Route: 048
     Dates: start: 201306, end: 201307
  2. XANAX [Concomitant]
     Dosage: 0.5 MG, UNK
  3. METHOTREXATE [Concomitant]
     Dosage: 2.5 MG, UNK
  4. ACETAMINOPHEN W/OXYCODONE [Concomitant]
     Dosage: OXYCODONE (7.5)/ ACETAMINOPHEN (500), UNK
  5. PERCOCET [Concomitant]
     Dosage: OXYCODONE HYDROCHLORIDE (7.5 MG)/PARACETAMOL (325 MG), 4X/DAY
  6. PROZAC [Concomitant]
     Dosage: 20 MG, UNK
  7. OXYCONTIN [Concomitant]
     Dosage: 20, 2X/DAY
  8. DEXIDRINE [Concomitant]
     Dosage: 10 X2, 2/DAY

REACTIONS (1)
  - Tooth abscess [Recovered/Resolved]
